FAERS Safety Report 16409594 (Version 2)
Quarter: 2019Q3

REPORT INFORMATION
  Report Type: Spontaneous
  Country: FR (occurrence: FR)
  Receive Date: 20190610
  Receipt Date: 20190808
  Transmission Date: 20191004
  Serious: Yes (Hospitalization)
  Sender: FDA-Public Use
  Company Number: FR-ACCORD-131953

PATIENT
  Age: 69 Year
  Sex: Female
  Weight: 58.8 kg

DRUGS (12)
  1. IBRANCE [Concomitant]
     Active Substance: PALBOCICLIB
     Dosage: 1 DF, QMO
     Route: 030
     Dates: start: 20180530, end: 20181105
  2. CALCIDOSE VITAMIN D [Concomitant]
     Active Substance: CALCIUM CARBONATE\CHOLECALCIFEROL
     Dosage: 1 ,POWDER IN SACHET-DOSE, 1 DF, QD
     Route: 048
  3. RAMIPRIL. [Suspect]
     Active Substance: RAMIPRIL
     Indication: HYPERTENSION
     Route: 048
  4. CIFLOX [Suspect]
     Active Substance: CIPROFLOXACIN
     Indication: LUNG INFECTION
     Dosage: STRENGTH 500 MG
     Route: 048
     Dates: start: 20181104, end: 20181105
  5. XYZAL [Concomitant]
     Active Substance: LEVOCETIRIZINE DIHYDROCHLORIDE
     Dosage: STRENGTH-5 MG
     Route: 048
  6. FASLODEX [Concomitant]
     Active Substance: FULVESTRANT
     Dosage: 250 MG / 5 ML
     Route: 030
     Dates: start: 20180530, end: 20181105
  7. XGEVA [Concomitant]
     Active Substance: DENOSUMAB
     Dosage: 120 MG
     Route: 030
  8. ESIDREX [Suspect]
     Active Substance: HYDROCHLOROTHIAZIDE
     Indication: HYPERTENSION
     Dosage: UNSPECIFIED (STRENGTH- 25 MG)
     Route: 048
  9. CORTANCYL [Concomitant]
     Active Substance: PREDNISONE
     Indication: INFECTION
     Route: 048
     Dates: start: 20181104, end: 20181107
  10. DUROGESIC [Concomitant]
     Active Substance: FENTANYL
     Dosage: 1 DF, QOD
     Route: 062
  11. AMOXICILLIN. [Concomitant]
     Active Substance: AMOXICILLIN
     Dosage: 6 G, QD
     Route: 048
  12. METFORMIN [Concomitant]
     Active Substance: METFORMIN HYDROCHLORIDE
     Route: 048

REACTIONS (1)
  - Prerenal failure [Recovered/Resolved]

NARRATIVE: CASE EVENT DATE: 20181106
